FAERS Safety Report 20417814 (Version 3)
Quarter: 2024Q4

REPORT INFORMATION
  Report Type: Spontaneous
  Country: US (occurrence: US)
  Receive Date: 20220202
  Receipt Date: 20241015
  Transmission Date: 20250115
  Serious: Yes (Hospitalization)
  Sender: MYLAN
  Company Number: US-MYLANLABS-2022M1008255

PATIENT
  Age: 44 Year
  Sex: Female
  Weight: 74.8 kg

DRUGS (6)
  1. EPIPEN [Suspect]
     Active Substance: EPINEPHRINE
     Indication: Product used for unknown indication
     Dosage: UNK
     Route: 065
     Dates: start: 20210906, end: 20210906
  2. NEURONTIN [Concomitant]
     Active Substance: GABAPENTIN
     Dosage: 300 MILLIGRAM, TID
     Route: 048
     Dates: start: 20210906
  3. MOTRIN [Concomitant]
     Active Substance: IBUPROFEN
     Dosage: 600 MILLIGRAM, Q6H
     Route: 048
     Dates: start: 20210906
  4. CEPHALEXIN [Concomitant]
     Active Substance: CEPHALEXIN
     Dosage: 500 MILLIGRAM, Q6H (TAKE 1 TABLET BY MOUTH EVERY SIX HOURS)
     Route: 048
     Dates: start: 20210909
  5. ACETAMINOPHEN\HYDROCODONE [Concomitant]
     Active Substance: ACETAMINOPHEN\HYDROCODONE
     Dosage: 5/325 MILLIGRAM, Q6H (TAKE 1 TABLET BY MOUTH EVERY SIX HOURS)
     Route: 048
     Dates: start: 20210909
  6. VITAMINS [Concomitant]
     Active Substance: VITAMINS
     Dosage: UNK
     Route: 048

REACTIONS (8)
  - Device defective [Unknown]
  - Injury associated with device [Unknown]
  - Needle issue [Unknown]
  - Injection site pain [Recovered/Resolved]
  - Injection site hypoaesthesia [Not Recovered/Not Resolved]
  - Foreign body in skin or subcutaneous tissue [Not Recovered/Not Resolved]
  - Blood pressure systolic increased [Unknown]
  - Accidental exposure to product [Unknown]

NARRATIVE: CASE EVENT DATE: 20210906
